FAERS Safety Report 4340521-3 (Version None)
Quarter: 2004Q2

REPORT INFORMATION
  Report Type: 
  Country: None (occurrence: None)
  Receive Date: 20040414
  Receipt Date: 20040402
  Transmission Date: 20050107
  Serious: Yes (Other)
  Sender: FDA-Public Use
  Company Number: 2004023282

PATIENT
  Age: 80 Year

DRUGS (1)
  1. ZARATOR (ATORVASTATIN) [Suspect]
     Indication: ILL-DEFINED DISORDER
     Dosage: 10 MG (UNKNOWN), ORAL
     Route: 048

REACTIONS (4)
  - DESQUAMATION MOUTH [None]
  - ENANTHEMA [None]
  - LARYNGEAL OEDEMA [None]
  - RASH MACULO-PAPULAR [None]
